FAERS Safety Report 12477896 (Version 2)
Quarter: 2016Q2

REPORT INFORMATION
  Report Type: Spontaneous
  Country: FR (occurrence: FR)
  Receive Date: 20160617
  Receipt Date: 20160622
  Transmission Date: 20160815
  Serious: Yes (Other)
  Sender: FDA-Public Use
  Company Number: FR-ASTRAZENECA-2016SE65419

PATIENT
  Age: 60 Year
  Sex: Female

DRUGS (2)
  1. LYNPARZA [Suspect]
     Active Substance: OLAPARIB
     Route: 048
     Dates: end: 201605
  2. FEW DRUGS WITH EFFECTS ON CYTOCHROME P3A4 [Concomitant]
     Indication: NERVOUS SYSTEM DISORDER

REACTIONS (2)
  - Interstitial lung disease [Recovering/Resolving]
  - Haematotoxicity [Not Recovered/Not Resolved]
